FAERS Safety Report 6268225-0 (Version None)
Quarter: 2009Q3

REPORT INFORMATION
  Report Type: 
  Country: None (occurrence: None)
  Receive Date: 20090715
  Receipt Date: 20090709
  Transmission Date: 20100115
  Serious: Yes (Death, Hospitalization)
  Sender: FDA-Public Use
  Company Number: AT-CELGENEUS-009-21880-09070589

PATIENT
  Sex: Male

DRUGS (2)
  1. REVLIMID [Suspect]
     Indication: MULTIPLE MYELOMA
     Route: 048
     Dates: start: 20060623, end: 20060627
  2. FORTECORTIN [Suspect]
     Indication: MULTIPLE MYELOMA
     Route: 048
     Dates: start: 20060623, end: 20060623

REACTIONS (1)
  - MULTIPLE MYELOMA [None]
